FAERS Safety Report 7944265-8 (Version None)
Quarter: 2011Q4

REPORT INFORMATION
  Report Type: 
  Country: None (occurrence: None)
  Receive Date: 20111129
  Receipt Date: 20111121
  Transmission Date: 20120403
  Serious: No
  Sender: FDA-Public Use
  Company Number: US-BIOGENIDEC-2011BI040646

PATIENT
  Sex: Female

DRUGS (4)
  1. TYSABRI [Suspect]
     Route: 042
     Dates: start: 20080404, end: 20080819
  2. TYSABRI [Suspect]
     Route: 042
     Dates: start: 20090127, end: 20100125
  3. SOLU-MEDROL [Concomitant]
  4. TYSABRI [Suspect]
     Indication: MULTIPLE SCLEROSIS
     Route: 042
     Dates: start: 20101122

REACTIONS (10)
  - MUSCLE SPASMS [None]
  - ANXIETY [None]
  - SENSATION OF HEAVINESS [None]
  - FATIGUE [None]
  - MOUTH ULCERATION [None]
  - NAUSEA [None]
  - DIZZINESS [None]
  - FEELING ABNORMAL [None]
  - STOMATITIS [None]
  - HEART RATE INCREASED [None]
